FAERS Safety Report 14825526 (Version 1)
Quarter: 2018Q2

REPORT INFORMATION
  Report Type: Spontaneous
  Country: DE (occurrence: DE)
  Receive Date: 20180430
  Receipt Date: 20180430
  Transmission Date: 20180711
  Serious: Yes (Other)
  Sender: FDA-Public Use
  Company Number: DE-IBIGEN-2018.03914

PATIENT
  Age: 31 Year
  Sex: Male

DRUGS (1)
  1. PIPERACILLIN SODIUM + TAZOBACTAM SODIUM [Suspect]
     Active Substance: PIPERACILLIN SODIUM\TAZOBACTAM SODIUM
     Indication: INFECTION
     Dosage: 4.5 G, UNK, 3 X 4.5 GRAM, DAILY DOSE
     Route: 042

REACTIONS (4)
  - Rash generalised [Recovered/Resolved]
  - General physical health deterioration [Recovered/Resolved]
  - Pyrexia [Recovered/Resolved]
  - Chills [Recovered/Resolved]
